FAERS Safety Report 8156469-2 (Version None)
Quarter: 2012Q1

REPORT INFORMATION
  Report Type: 
  Country: None (occurrence: None)
  Receive Date: 20120216
  Receipt Date: 20120206
  Transmission Date: 20120608
  Serious: Yes (Hospitalization, Other)
  Sender: FDA-Public Use
  Company Number: 1000027958

PATIENT
  Age: 62 Year
  Sex: Male

DRUGS (5)
  1. ENALAPRIL MALEATE [Concomitant]
  2. DILTIAZEM HYDROCHLORIDE [Suspect]
     Dosage: 240 MG (240 MG, 1 IN 1 D)
  3. PREDNISONE [Concomitant]
  4. RANOLAZINE [Suspect]
     Indication: MYOCARDIAL ISCHAEMIA
     Dosage: 1000 MG (500 MG, 2 IN 1 D); 1000 MG (1000 MG, 2 IN 1 D)
  5. TACROLIMUS [Suspect]
     Indication: RENAL TRANSPLANT

REACTIONS (7)
  - TOXICITY TO VARIOUS AGENTS [None]
  - FATIGUE [None]
  - TREMOR [None]
  - LETHARGY [None]
  - DRUG INTERACTION [None]
  - SINUS BRADYCARDIA [None]
  - DECREASED APPETITE [None]
